FAERS Safety Report 13965596 (Version 2)
Quarter: 2017Q3

REPORT INFORMATION
  Report Type: Spontaneous
  Country: US (occurrence: US)
  Receive Date: 20170913
  Receipt Date: 20170918
  Transmission Date: 20171128
  Serious: Yes (Other)
  Sender: FDA-Public Use
  Company Number: US-UNITED THERAPEUTICS-UNT-2017-010982

PATIENT
  Age: 34 Year
  Sex: Female

DRUGS (5)
  1. ORENITRAM [Suspect]
     Active Substance: TREPROSTINIL
     Dosage: 22.5 MG, TID
     Route: 048
     Dates: start: 20170828
  2. ORENITRAM [Suspect]
     Active Substance: TREPROSTINIL
     Dosage: 21.75 MG, TID
     Route: 048
  3. AMBRISENTAN [Suspect]
     Active Substance: AMBRISENTAN
     Indication: PRODUCT USED FOR UNKNOWN INDICATION
     Dosage: 10 MG, QD
     Route: 065
     Dates: start: 20141213
  4. ORENITRAM [Suspect]
     Active Substance: TREPROSTINIL
     Indication: PULMONARY ARTERIAL HYPERTENSION
     Dosage: 20.5 MG, TID (2.5 MG 8 DOSES AND 0.25 MG TWO DOSES)
     Route: 048
     Dates: start: 20150523
  5. ADCIRCA [Concomitant]
     Active Substance: TADALAFIL
     Indication: PRODUCT USED FOR UNKNOWN INDICATION
     Dosage: UNK

REACTIONS (7)
  - Diarrhoea [Unknown]
  - Nausea [Unknown]
  - Diverticulitis [Not Recovered/Not Resolved]
  - Electrolyte imbalance [Recovering/Resolving]
  - Malaise [Unknown]
  - Vomiting [Unknown]
  - Fluid retention [Recovering/Resolving]

NARRATIVE: CASE EVENT DATE: 20170720
